FAERS Safety Report 8829363 (Version 1)
Quarter: 2012Q4

REPORT INFORMATION
  Report Type: Report from Study
  Country: JP (occurrence: JP)
  Receive Date: 20121008
  Receipt Date: 20121008
  Transmission Date: 20130627
  Serious: Yes (Hospitalization)
  Sender: FDA-Public Use
  Company Number: JP-VERTEX PHARMACEUTICAL INC.-2012-022348

PATIENT
  Age: 42 Year
  Sex: Male

DRUGS (16)
  1. VX-950 [Suspect]
     Indication: HEPATITIS C
     Dosage: 1500 mg, qd
     Route: 048
     Dates: start: 20120727, end: 20120822
  2. RIBAVIRIN [Suspect]
     Indication: HEPATITIS C
     Dosage: 800 mg, qd
     Route: 048
     Dates: start: 20120727, end: 20120822
  3. PEGINTRON                          /01543001/ [Suspect]
     Indication: HEPATITIS C
     Dosage: 1.5 ?g/kg, qw
     Route: 058
     Dates: start: 20120727, end: 20120817
  4. MOHRUS TAPE [Concomitant]
     Route: 062
  5. ADVATE [Concomitant]
     Route: 042
  6. MALFA [Concomitant]
     Route: 048
  7. SANMEL HEXAL [Concomitant]
     Route: 048
  8. THROMBIN [Concomitant]
     Route: 048
  9. ADONA                              /00056903/ [Concomitant]
     Route: 042
  10. LOXONIN [Concomitant]
     Route: 062
  11. SOLDEM 3A [Concomitant]
     Dosage: 500 ml, UNK
     Route: 042
     Dates: start: 20120823, end: 20120828
  12. LACTEC G [Concomitant]
     Dosage: 500 ml, UNK
     Route: 042
     Dates: start: 20120823, end: 20120827
  13. FOSMICIN                           /00552502/ [Concomitant]
     Dosage: 4 g, UNK
     Route: 042
     Dates: start: 20120824, end: 20120826
  14. GASTER [Concomitant]
     Dosage: 20 mg, UNK
     Route: 042
     Dates: start: 20120824, end: 20120824
  15. GASTER [Concomitant]
     Dosage: 40 mg, UNK
     Route: 042
     Dates: start: 20120825, end: 20120828
  16. SEISHOKU [Concomitant]
     Route: 042

REACTIONS (1)
  - Synovial cyst [Unknown]
